FAERS Safety Report 5241258-9 (Version None)
Quarter: 2007Q1

REPORT INFORMATION
  Report Type: 
  Country: None (occurrence: None)
  Receive Date: 20070215
  Receipt Date: 20070215
  Transmission Date: 20070707
  Serious: Yes (Hospitalization)
  Sender: FDA-Public Use
  Company Number: None

PATIENT
  Age: 58 Year
  Sex: Male

DRUGS (13)
  1. GLIPIZIDE [Suspect]
     Indication: DIABETES MELLITUS NON-INSULIN-DEPENDENT
     Dosage: 10MG QAM 5MG QPM
     Dates: start: 20030401
  2. METOPROLOL SUCCINATE [Suspect]
     Indication: HYPERTENSION
     Dosage: 25 MG BID
     Dates: start: 20060701
  3. ASPIRIN [Concomitant]
  4. CLONAZEPAM [Concomitant]
  5. FERROUS SULFATE TAB [Concomitant]
  6. LORTAB [Concomitant]
  7. HYOSCYAMINE [Concomitant]
  8. OMEPRAZOLE [Concomitant]
  9. CITALOPRAM HYDROBROMIDE [Concomitant]
  10. ALENDRONATE SODIUM [Concomitant]
  11. LORATADINE [Concomitant]
  12. ZOCOR [Concomitant]
  13. GABAPENTIN [Concomitant]

REACTIONS (3)
  - BRADYCARDIA [None]
  - FALL [None]
  - HYPOGLYCAEMIA [None]
